FAERS Safety Report 10092374 (Version 1)
Quarter: 2014Q2

REPORT INFORMATION
  Report Type: Spontaneous
  Country: US (occurrence: US)
  Receive Date: 20140421
  Receipt Date: 20140421
  Transmission Date: 20141212
  Serious: No
  Sender: FDA-Public Use
  Company Number: US-SANOFI-AVENTIS-2013SA031332

PATIENT
  Age: 76 Year
  Sex: Male

DRUGS (16)
  1. ALLEGRA [Suspect]
     Indication: RHINORRHOEA
     Route: 048
     Dates: start: 20130317
  2. VITAMIN A [Concomitant]
  3. VITAMIN B [Concomitant]
  4. VITAMIN C [Concomitant]
  5. VITAMIN D [Concomitant]
  6. VITAMIN E [Concomitant]
  7. FISH OIL [Concomitant]
  8. ALL OTHER THERAPEUTIC PRODUCTS [Concomitant]
  9. ASPIRIN [Concomitant]
  10. COENZYME Q10 [Concomitant]
  11. ZINC [Concomitant]
  12. POTASSIUM [Concomitant]
  13. FOLIC ACID [Concomitant]
  14. B COMPLEX [Concomitant]
  15. LYCOPENE [Concomitant]
  16. SAW PALMETTO [Concomitant]

REACTIONS (2)
  - Sneezing [Recovered/Resolved]
  - Drug ineffective [Unknown]
